FAERS Safety Report 4401284-6 (Version None)
Quarter: 2004Q3

REPORT INFORMATION
  Report Type: 
  Country: None (occurrence: None)
  Receive Date: 20040907
  Receipt Date: 20040209
  Transmission Date: 20050211
  Serious: No
  Sender: FDA-Public Use
  Company Number: US-BRISTOL-MYERS SQUIBB COMPANY-12500534

PATIENT
  Age: 79 Year
  Sex: Male
  Weight: 98 kg

DRUGS (7)
  1. COUMADIN [Suspect]
     Indication: ATRIAL FIBRILLATION
     Dosage: 7.5MG 4 X'S WEEKLY + 5MG 3 X'S WEEKLY.
     Route: 048
     Dates: start: 20010101
  2. GREEN TEA [Suspect]
     Dosage: 1 CUP DAILY
     Dates: start: 20040101
  3. DIGOXIN [Concomitant]
  4. ATENOLOL [Concomitant]
  5. TERAZOSIN HCL [Concomitant]
  6. ASPIRIN [Concomitant]
  7. EYE DROPS [Concomitant]
     Indication: GLAUCOMA
     Route: 031

REACTIONS (1)
  - INTERNATIONAL NORMALISED RATIO DECREASED [None]
